FAERS Safety Report 6362535-4 (Version None)
Quarter: 2009Q3

REPORT INFORMATION
  Report Type: 
  Country: None (occurrence: None)
  Receive Date: 20090918
  Receipt Date: 20090604
  Transmission Date: 20100115
  Serious: No
  Sender: FDA-Public Use
  Company Number: US-ABBOTT-09P-163-0578139-00

PATIENT
  Sex: Female

DRUGS (1)
  1. HUMIRA [Suspect]
     Indication: PSORIASIS
     Dates: start: 20090501

REACTIONS (5)
  - ONYCHOMADESIS [None]
  - PAIN OF SKIN [None]
  - SCAB [None]
  - SKIN DISCOLOURATION [None]
  - SOMNOLENCE [None]
